FAERS Safety Report 25317523 (Version 1)
Quarter: 2025Q2

REPORT INFORMATION
  Report Type: Spontaneous
  Country: CN (occurrence: CN)
  Receive Date: 20250515
  Receipt Date: 20250515
  Transmission Date: 20250717
  Serious: Yes (Other)
  Sender: ALKEM
  Company Number: CN-ALKEM LABORATORIES LIMITED-CN-ALKEM-2024-26851

PATIENT
  Age: 52 Year
  Sex: Male

DRUGS (3)
  1. AZATHIOPRINE [Suspect]
     Active Substance: AZATHIOPRINE
     Indication: Cronkhite-Canada syndrome
     Dosage: 1.00 MILLIGRAM/KILOGRAM, QD
     Route: 065
  2. METHYLPREDNISOLONE [Suspect]
     Active Substance: METHYLPREDNISOLONE
     Indication: Immunosuppressant drug therapy
     Dosage: 40 MILLIGRAM, QD
     Route: 065
  3. METHYLPREDNISOLONE [Suspect]
     Active Substance: METHYLPREDNISOLONE
     Route: 065

REACTIONS (1)
  - Pneumocystis jirovecii pneumonia [Recovered/Resolved]
